FAERS Safety Report 5499934-9 (Version None)
Quarter: 2007Q4

REPORT INFORMATION
  Report Type: 
  Country: None (occurrence: None)
  Receive Date: 20071026
  Receipt Date: 20071017
  Transmission Date: 20080405
  Serious: Yes (Other)
  Sender: FDA-Public Use
  Company Number: JP-PFIZER INC-2007087918

PATIENT
  Age: 57 Year
  Sex: Female

DRUGS (2)
  1. DEPO-MEDROL [Suspect]
     Route: 008
  2. ROPIVACAINE [Concomitant]
     Route: 008

REACTIONS (2)
  - BRAIN STEM INFARCTION [None]
  - CEREBELLAR INFARCTION [None]
